FAERS Safety Report 6630826-5 (Version None)
Quarter: 2010Q1

REPORT INFORMATION
  Report Type: 
  Country: None (occurrence: None)
  Receive Date: 20100310
  Receipt Date: 20100310
  Transmission Date: 20100710
  Serious: Yes (Hospitalization)
  Sender: FDA-Public Use
  Company Number: None

PATIENT
  Sex: Female
  Weight: 84.8 kg

DRUGS (2)
  1. CISPLATIN [Suspect]
     Dosage: 147 MG
     Dates: end: 20100303
  2. GEMCITABINE HCL [Suspect]
     Dosage: 2352 MG
     Dates: end: 20100303

REACTIONS (3)
  - NAUSEA [None]
  - OESOPHAGITIS [None]
  - VOMITING [None]
